FAERS Safety Report 13682881 (Version 1)
Quarter: 2017Q2

REPORT INFORMATION
  Report Type: Spontaneous
  Country: US (occurrence: US)
  Receive Date: 20170623
  Receipt Date: 20170623
  Transmission Date: 20170830
  Serious: No
  Sender: FDA-Public Use
  Company Number: US-MALLINCKRODT-T201700736

PATIENT
  Sex: Male
  Weight: 59 kg

DRUGS (5)
  1. ALLEGRA [Concomitant]
     Active Substance: FEXOFENADINE HYDROCHLORIDE
     Indication: PRODUCT USED FOR UNKNOWN INDICATION
     Dosage: UNK, PRN
     Route: 065
  2. ALBUTEROL. [Concomitant]
     Active Substance: ALBUTEROL
     Indication: PRODUCT USED FOR UNKNOWN INDICATION
     Dosage: UNK
     Route: 065
  3. CELLCEPT [Concomitant]
     Active Substance: MYCOPHENOLATE MOFETIL\MYCOPHENOLATE MOFETIL HYDROCHLORIDE
     Indication: PRODUCT USED FOR UNKNOWN INDICATION
     Dosage: UNK,
     Route: 065
  4. H.P. ACTHAR [Suspect]
     Active Substance: CORTICOTROPIN
     Indication: FOCAL SEGMENTAL GLOMERULOSCLEROSIS
     Dosage: 40 UNITS/ ML TWICE PER WEEK
     Route: 058
     Dates: start: 201612
  5. H.P. ACTHAR [Suspect]
     Active Substance: CORTICOTROPIN
     Dosage: 80 UNITS/ML, TWICE WEEKLY
     Route: 058
     Dates: end: 201702

REACTIONS (6)
  - Fatigue [Unknown]
  - Condition aggravated [Unknown]
  - Dysuria [Unknown]
  - Flushing [Unknown]
  - Malaise [Unknown]
  - Oedema [Unknown]

NARRATIVE: CASE EVENT DATE: 2017
